FAERS Safety Report 7816360-5 (Version None)
Quarter: 2011Q4

REPORT INFORMATION
  Report Type: 
  Country: None (occurrence: None)
  Receive Date: 20111017
  Receipt Date: 20111013
  Transmission Date: 20120403
  Serious: Yes (Other)
  Sender: FDA-Public Use
  Company Number: US-BIOGENIDEC-2010BI044992

PATIENT
  Age: 31 Year
  Sex: Female

DRUGS (7)
  1. AVONEX [Suspect]
     Indication: MULTIPLE SCLEROSIS
     Route: 030
     Dates: start: 20100317, end: 20101123
  2. XANAX [Concomitant]
  3. NEEVO DHA [Concomitant]
  4. TESTOSTERONE [Concomitant]
  5. SYNTHROID [Concomitant]
  6. AMANTADINE HCL [Concomitant]
     Indication: FATIGUE
  7. PROGESTERONE [Concomitant]

REACTIONS (1)
  - HIGH RISK PREGNANCY [None]
